FAERS Safety Report 4283232-5 (Version None)
Quarter: 2004Q1

REPORT INFORMATION
  Report Type: 
  Country: None (occurrence: None)
  Receive Date: 20040129
  Receipt Date: 20040114
  Transmission Date: 20041129
  Serious: Yes (Hospitalization)
  Sender: FDA-Public Use
  Company Number: 2004AP00191

PATIENT
  Age: 77 Year
  Sex: Female

DRUGS (7)
  1. ATENOLOL [Suspect]
     Dosage: 50 MG DAILY PO
     Route: 048
  2. AMLODIPINE [Suspect]
     Indication: HYPERTENSION
     Dosage: 5 MG DAILY PO
     Route: 048
     Dates: start: 20030101
  3. PERINDOPRIL ERBUMINE [Suspect]
     Dosage: 8 MG DAILY PO
     Route: 048
  4. HYDROCHLOROTHIAZIDE [Suspect]
     Dosage: 25 MG DAILY PO
     Route: 048
  5. CLOPIDOGREL BISULFATE [Concomitant]
  6. ATORVASTATIN [Concomitant]
  7. THYROID TAB [Concomitant]

REACTIONS (1)
  - CHEST PAIN [None]
